FAERS Safety Report 7002729-8 (Version None)
Quarter: 2010Q3

REPORT INFORMATION
  Report Type: 
  Country: None (occurrence: None)
  Receive Date: 20100920
  Receipt Date: 20071112
  Transmission Date: 20110219
  Serious: No
  Sender: FDA-Public Use
  Company Number: US-ASTRAZENECA-2006UW03316

PATIENT
  Age: 37 Year
  Sex: Male
  Weight: 156.5 kg

DRUGS (5)
  1. SEROQUEL [Suspect]
     Indication: SCHIZOPHRENIA
     Route: 048
     Dates: start: 20000101, end: 20050101
  2. SEROQUEL [Suspect]
     Dosage: 300-600 MG
     Route: 048
     Dates: start: 20020916
  3. RISPERDAL [Concomitant]
     Dates: start: 19990101, end: 20000101
  4. ZOLOFT [Concomitant]
     Dates: start: 20030908
  5. VALIUM [Concomitant]
     Dates: start: 20030908

REACTIONS (2)
  - DIABETES MELLITUS [None]
  - WEIGHT INCREASED [None]
